FAERS Safety Report 14001258 (Version 1)
Quarter: 2017Q3

REPORT INFORMATION
  Report Type: Report from Study
  Country: BR (occurrence: BR)
  Receive Date: 20170922
  Receipt Date: 20170922
  Transmission Date: 20171128
  Serious: Yes (Other)
  Sender: FDA-Public Use
  Company Number: BR-BAYER-2017-050815

PATIENT
  Sex: Female

DRUGS (1)
  1. AVALOX 400MG [Suspect]
     Active Substance: MOXIFLOXACIN HYDROCHLORIDE
     Indication: PNEUMONIA
     Dosage: 400 MG, BID

REACTIONS (4)
  - Dyspnoea [Recovered/Resolved]
  - Dry throat [None]
  - Anaphylactic reaction [Recovered/Resolved]
  - Dry eye [None]
